FAERS Safety Report 23154088 (Version 1)
Quarter: 2023Q4

REPORT INFORMATION
  Report Type: Report from Study
  Country: NL (occurrence: NL)
  Receive Date: 20231107
  Receipt Date: 20231107
  Transmission Date: 20240109
  Serious: Yes (Other)
  Sender: FDA-Public Use
  Company Number: NL-AstraZeneca-2023A247720

PATIENT
  Age: 75 Day
  Sex: Male
  Weight: 3 kg

DRUGS (1)
  1. SYNAGIS [Suspect]
     Active Substance: PALIVIZUMAB
     Indication: Premature baby
     Dosage: 15 MG/KG MONTHLY
     Route: 030
     Dates: start: 20231010

REACTIONS (4)
  - Shock [Recovered/Resolved]
  - Dyskinesia [Recovered/Resolved]
  - Eye disorder [Recovered/Resolved]
  - Crying [Unknown]

NARRATIVE: CASE EVENT DATE: 20231010
